FAERS Safety Report 17714453 (Version 6)
Quarter: 2021Q4

REPORT INFORMATION
  Report Type: Spontaneous
  Country: US (occurrence: US)
  Receive Date: 20200427
  Receipt Date: 20211202
  Transmission Date: 20220303
  Serious: Yes (Hospitalization, Other)
  Sender: FDA-Public Use
  Company Number: US-GILEAD-2020-0460865

PATIENT
  Age: 33 Year
  Sex: Male
  Weight: 73.016 kg

DRUGS (90)
  1. VIREAD [Suspect]
     Active Substance: TENOFOVIR DISOPROXIL FUMARATE
     Indication: HIV infection
     Dosage: UNK
     Route: 048
     Dates: start: 20040112, end: 20171023
  2. VIREAD [Suspect]
     Active Substance: TENOFOVIR DISOPROXIL FUMARATE
     Indication: Hepatitis B
     Dosage: UNK
     Route: 048
     Dates: start: 20091223, end: 201109
  3. TRUVADA [Suspect]
     Active Substance: EMTRICITABINE\TENOFOVIR DISOPROXIL FUMARATE
     Indication: HIV infection
     Dosage: UNK
     Route: 048
     Dates: start: 20050228, end: 20050228
  4. TRUVADA [Suspect]
     Active Substance: EMTRICITABINE\TENOFOVIR DISOPROXIL FUMARATE
     Indication: Hepatitis B
     Dosage: UNK
     Route: 048
     Dates: start: 20070627, end: 20080529
  5. TRUVADA [Suspect]
     Active Substance: EMTRICITABINE\TENOFOVIR DISOPROXIL FUMARATE
     Dosage: UNK
     Route: 048
     Dates: end: 201710
  6. TRUVADA [Suspect]
     Active Substance: EMTRICITABINE\TENOFOVIR DISOPROXIL FUMARATE
     Dosage: UNK
     Route: 048
     Dates: start: 20050228, end: 20050528
  7. ATRIPLA [Suspect]
     Active Substance: EFAVIRENZ\EMTRICITABINE\TENOFOVIR DISOPROXIL FUMARATE
     Indication: HIV infection
     Dosage: UNK
     Route: 048
     Dates: start: 20050526, end: 20050805
  8. ATRIPLA [Suspect]
     Active Substance: EFAVIRENZ\EMTRICITABINE\TENOFOVIR DISOPROXIL FUMARATE
     Indication: Hepatitis B
     Dosage: UNK
     Route: 048
     Dates: start: 200805, end: 200805
  9. ODEFSEY [Concomitant]
     Active Substance: EMTRICITABINE\RILPIVIRINE HYDROCHLORIDE\TENOFOVIR ALAFENAMIDE FUMARATE
     Indication: HIV infection
     Route: 048
  10. COMBIVIR [Concomitant]
     Active Substance: LAMIVUDINE\ZIDOVUDINE
  11. EPIVIR [Concomitant]
     Active Substance: LAMIVUDINE
  12. INVIRASE [Concomitant]
     Active Substance: SAQUINAVIR MESYLATE
  13. ISENTRESS [Concomitant]
     Active Substance: RALTEGRAVIR POTASSIUM
  14. KALETRA [Concomitant]
     Active Substance: LOPINAVIR\RITONAVIR
  15. NORVIR [Concomitant]
     Active Substance: RITONAVIR
  16. PREZISTA [Concomitant]
     Active Substance: DARUNAVIR ETHANOLATE
  17. RETROVIR [Concomitant]
     Active Substance: ZIDOVUDINE
  18. REYATAZ [Concomitant]
     Active Substance: ATAZANAVIR SULFATE
  19. SUSTIVA [Concomitant]
     Active Substance: EFAVIRENZ
  20. TIVICAY [Concomitant]
     Active Substance: DOLUTEGRAVIR SODIUM
  21. VIDEX [Concomitant]
     Active Substance: DIDANOSINE
  22. VIRACEPT [Concomitant]
     Active Substance: NELFINAVIR MESYLATE
  23. ZERIT [Concomitant]
     Active Substance: STAVUDINE
  24. ACETAMINOPHEN [Concomitant]
     Active Substance: ACETAMINOPHEN
  25. ACYCLOVIR [Concomitant]
     Active Substance: ACYCLOVIR
  26. AMOXICILLIN [Concomitant]
     Active Substance: AMOXICILLIN
  27. BACTRIM [Concomitant]
     Active Substance: SULFAMETHOXAZOLE\TRIMETHOPRIM
  28. FLEET LAXATIVE [Concomitant]
  29. HEPARIN [Concomitant]
     Active Substance: HEPARIN SODIUM
  30. PANTOPRAZOLE [Concomitant]
     Active Substance: PANTOPRAZOLE
  31. VANCOMYCIN [Concomitant]
     Active Substance: VANCOMYCIN
  32. OXYCODONE AND ACETAMINOPHEN [Concomitant]
     Active Substance: ACETAMINOPHEN\OXYCODONE HYDROCHLORIDE
  33. ACETAMINOPHEN\HYDROCODONE [Concomitant]
     Active Substance: ACETAMINOPHEN\HYDROCODONE
  34. TYLENOL [Concomitant]
     Active Substance: ACETAMINOPHEN
  35. ASPIRIN [Concomitant]
     Active Substance: ASPIRIN
  36. LABETALOL [Concomitant]
     Active Substance: LABETALOL\LABETALOL HYDROCHLORIDE
  37. HYDROCHLOROTHIAZIDE [Concomitant]
     Active Substance: HYDROCHLOROTHIAZIDE
  38. NIFEDIPINE [Concomitant]
     Active Substance: NIFEDIPINE
  39. PHENETICILLIN [Concomitant]
     Active Substance: PHENETICILLIN
  40. PREDNISONE [Concomitant]
     Active Substance: PREDNISONE
  41. MAALOX PLUS [ALUMINIUM HYDROXIDE;MAGNESIUM HYDROXIDE;SIMETICONE] [Concomitant]
  42. ALEVE [Concomitant]
     Active Substance: NAPROXEN SODIUM
  43. DICLOFENAC [Concomitant]
     Active Substance: DICLOFENAC
  44. TRAMADOL [Concomitant]
     Active Substance: TRAMADOL
  45. METRONIDAZOLE [Concomitant]
     Active Substance: METRONIDAZOLE
  46. LEVOFLOXACIN [Concomitant]
     Active Substance: LEVOFLOXACIN
  47. LIDOCAINE [Concomitant]
     Active Substance: LIDOCAINE
  48. DICYCLOMINE HYDROCHLORIDE [Concomitant]
     Active Substance: DICYCLOMINE HYDROCHLORIDE
  49. NYSTATIN [Concomitant]
     Active Substance: NYSTATIN
  50. AMIODARONE [Concomitant]
     Active Substance: AMIODARONE
  51. MIDODRINE [Concomitant]
     Active Substance: MIDODRINE
  52. THORAZINE [Concomitant]
     Active Substance: CHLORPROMAZINE
  53. XIFAXAN [Concomitant]
     Active Substance: RIFAXIMIN
  54. OFLOXACIN [Concomitant]
     Active Substance: OFLOXACIN
  55. GAVILYTE G [Concomitant]
     Active Substance: POLYETHYLENE GLYCOL 3350\POTASSIUM CHLORIDE\SODIUM BICARBONATE\SODIUM CHLORIDE\SODIUM SULFATE
  56. CIPROFLOXACIN [Concomitant]
     Active Substance: CIPROFLOXACIN
  57. POTASSIUM CHLORIDE [Concomitant]
     Active Substance: POTASSIUM CHLORIDE
  58. DOCQLACE [Concomitant]
     Active Substance: DOCUSATE SODIUM
  59. CLINDAMYCIN [Concomitant]
     Active Substance: CLINDAMYCIN
  60. GENTAMICIN [Concomitant]
     Active Substance: GENTAMICIN
  61. CYANOCOBALAMIN [Concomitant]
     Active Substance: CYANOCOBALAMIN
  62. AZITHROMYCIN [Concomitant]
     Active Substance: AZITHROMYCIN
  63. ZITHROMAX [Concomitant]
     Active Substance: AZITHROMYCIN DIHYDRATE
  64. IMIQUIMOD [Concomitant]
     Active Substance: IMIQUIMOD
  65. SEVELAMER [Concomitant]
     Active Substance: SEVELAMER
  66. Q-TUSSIN DM [Concomitant]
  67. MEGESTROL [Concomitant]
     Active Substance: MEGESTROL
  68. CINACALCET [Concomitant]
     Active Substance: CINACALCET
  69. CALCITRIOL [Concomitant]
     Active Substance: CALCITRIOL
  70. FEXOFENADINE;PSEUDOEPHEDRINE [Concomitant]
  71. CEPHALEXIN [Concomitant]
     Active Substance: CEPHALEXIN
  72. CETIRIZINE [Concomitant]
     Active Substance: CETIRIZINE HYDROCHLORIDE
  73. CALCIUM CARBONATE [Concomitant]
     Active Substance: CALCIUM CARBONATE
  74. PODOFILOX [Concomitant]
     Active Substance: PODOFILOX
  75. DOCUSATE SODIUM [Concomitant]
     Active Substance: DOCUSATE SODIUM
  76. LORATADINE [Concomitant]
     Active Substance: LORATADINE
  77. ROCEPHIN [Concomitant]
     Active Substance: CEFTRIAXONE SODIUM
  78. ROBITUSSIN (GUAIFENESIN) [Concomitant]
     Active Substance: GUAIFENESIN
  79. DIFLUCAN [Concomitant]
     Active Substance: FLUCONAZOLE
  80. FLUCONAZOLE [Concomitant]
     Active Substance: FLUCONAZOLE
  81. PHENERGAN [Concomitant]
     Active Substance: PROMETHAZINE HYDROCHLORIDE
  82. BENADRYL [Concomitant]
     Active Substance: DIPHENHYDRAMINE HYDROCHLORIDE
  83. MILK OF MAGNESIA [Concomitant]
     Active Substance: MAGNESIUM HYDROXIDE
  84. VIBRAMYCIN [DOXYCYCLINE HYCLATE] [Concomitant]
  85. ANCEF [Concomitant]
     Active Substance: CEFAZOLIN SODIUM
  86. DIBUCAINE HYDROCHLORIDE [Concomitant]
     Active Substance: DIBUCAINE HYDROCHLORIDE
  87. KYTRIL [Concomitant]
     Active Substance: GRANISETRON HYDROCHLORIDE
  88. VERSED [Concomitant]
     Active Substance: MIDAZOLAM HYDROCHLORIDE
  89. SUBLIMAZE [Concomitant]
     Active Substance: FENTANYL CITRATE
  90. ONDANSETRON [Concomitant]
     Active Substance: ONDANSETRON

REACTIONS (11)
  - End stage renal disease [Not Recovered/Not Resolved]
  - Chronic kidney disease [Not Recovered/Not Resolved]
  - Renal tubular necrosis [Not Recovered/Not Resolved]
  - Renal failure [Not Recovered/Not Resolved]
  - Acute kidney injury [Not Recovered/Not Resolved]
  - Hyperparathyroidism secondary [Not Recovered/Not Resolved]
  - Pain [Not Recovered/Not Resolved]
  - Emotional distress [Not Recovered/Not Resolved]
  - Anxiety [Not Recovered/Not Resolved]
  - Renal cyst [Unknown]
  - Mobility decreased [Unknown]

NARRATIVE: CASE EVENT DATE: 20040617
